FAERS Safety Report 5841213-1 (Version None)
Quarter: 2008Q3

REPORT INFORMATION
  Report Type: 
  Country: None (occurrence: None)
  Receive Date: 20080812
  Receipt Date: 20080806
  Transmission Date: 20090109
  Serious: Yes (Other)
  Sender: FDA-Public Use
  Company Number: US-JNJFOC-20080106138

PATIENT
  Age: 14 Year
  Sex: Male
  Weight: 56.7 kg

DRUGS (2)
  1. RETIN-A [Suspect]
     Indication: ACNE
     Route: 061
  2. DUAC [Concomitant]

REACTIONS (1)
  - DERMATITIS [None]
